FAERS Safety Report 17604899 (Version 4)
Quarter: 2022Q1

REPORT INFORMATION
  Report Type: Spontaneous
  Country: CA (occurrence: CA)
  Receive Date: 20200331
  Receipt Date: 20220109
  Transmission Date: 20220423
  Serious: Yes (Other)
  Sender: FDA-Public Use
  Company Number: CA-SAMSUNG BIOEPIS-SB-2020-10514

PATIENT
  Age: 31 Year
  Sex: Female
  Weight: 73 kg

DRUGS (10)
  1. INFLIXIMAB [Suspect]
     Active Substance: INFLIXIMAB
     Indication: Colitis ulcerative
     Route: 042
  2. INFLIXIMAB [Suspect]
     Active Substance: INFLIXIMAB
     Route: 042
  3. CIPRO [Concomitant]
     Active Substance: CIPROFLOXACIN HYDROCHLORIDE
     Indication: Rectal abscess
     Route: 048
  4. CIPRO [Concomitant]
     Active Substance: CIPROFLOXACIN HYDROCHLORIDE
     Indication: Fistula
     Dosage: UNKNOWN
     Route: 048
  5. CLOBETASOL [Concomitant]
     Active Substance: CLOBETASOL
     Indication: Product used for unknown indication
     Dosage: UNKNOWN
     Route: 065
  6. FLAGYL [Concomitant]
     Active Substance: METRONIDAZOLE\METRONIDAZOLE HYDROCHLORIDE
     Indication: Rectal abscess
     Dosage: UNKNOWN
     Route: 048
  7. FLAGYL [Concomitant]
     Active Substance: METRONIDAZOLE\METRONIDAZOLE HYDROCHLORIDE
     Indication: Fistula
     Route: 048
  8. FLUOROMETHOLONE [Concomitant]
     Active Substance: FLUOROMETHOLONE
     Indication: Eye inflammation
     Route: 047
  9. ORACORT [Concomitant]
     Indication: Crohn^s disease
     Route: 065
  10. TRIAMCINOLONE ACETONIDE [Concomitant]
     Active Substance: TRIAMCINOLONE ACETONIDE
     Indication: Crohn^s disease
     Route: 065

REACTIONS (18)
  - Condition aggravated [Not Recovered/Not Resolved]
  - Ear infection fungal [Not Recovered/Not Resolved]
  - Ear infection viral [Not Recovered/Not Resolved]
  - Nasopharyngitis [Not Recovered/Not Resolved]
  - Poor venous access [Not Recovered/Not Resolved]
  - Pyrexia [Not Recovered/Not Resolved]
  - Rectal abscess [Not Recovered/Not Resolved]
  - Sinusitis [Not Recovered/Not Resolved]
  - Upper respiratory tract infection [Not Recovered/Not Resolved]
  - Weight decreased [Not Recovered/Not Resolved]
  - Gastrointestinal disorder [Not Recovered/Not Resolved]
  - Hyperhidrosis [Not Recovered/Not Resolved]
  - Illness [Not Recovered/Not Resolved]
  - Malaise [Not Recovered/Not Resolved]
  - Influenza [Recovered/Resolved]
  - Intentional product use issue [Not Recovered/Not Resolved]
  - Off label use [Not Recovered/Not Resolved]
  - Incorrect dose administered [Not Recovered/Not Resolved]
